FAERS Safety Report 13729109 (Version 1)
Quarter: 2017Q3

REPORT INFORMATION
  Report Type: Spontaneous
  Country: CA (occurrence: CA)
  Receive Date: 20170707
  Receipt Date: 20170707
  Transmission Date: 20171127
  Serious: Yes (Other)
  Sender: FDA-Public Use
  Company Number: CA-BAUSCH-BL-2017-018317

PATIENT
  Age: 66 Year
  Sex: Female
  Weight: 50.85 kg

DRUGS (2)
  1. XERESE [Suspect]
     Active Substance: ACYCLOVIR\HYDROCORTISONE
     Indication: ORAL HERPES
     Dosage: AS DIRECTED
     Route: 061
     Dates: start: 20170524, end: 20170529
  2. LORAZEPAM. [Concomitant]
     Active Substance: LORAZEPAM
     Indication: FEELING OF RELAXATION
     Dosage: AS NEEDED
     Route: 065

REACTIONS (5)
  - Drug administered at inappropriate site [Unknown]
  - Nerve compression [Unknown]
  - Retinal detachment [Unknown]
  - Myopia [Unknown]
  - Intraocular pressure decreased [Unknown]

NARRATIVE: CASE EVENT DATE: 2017
